FAERS Safety Report 8956955 (Version 1)
Quarter: 2012Q4

REPORT INFORMATION
  Report Type: Spontaneous
  Country: US (occurrence: None)
  Receive Date: 20121205
  Receipt Date: 20121205
  Transmission Date: 20130627
  Serious: Yes (Other)
  Sender: FDA-Public Use
  Company Number: None

PATIENT
  Age: 27 Year
  Sex: Male
  Weight: 92.99 kg

DRUGS (2)
  1. PAXIL [Suspect]
     Indication: ANXIETY
     Route: 048
  2. LIPITOR [Suspect]
     Indication: HIGH CHOLESTEROL
     Dosage: off and on for 1 year
     Route: 048

REACTIONS (4)
  - Haematochezia [None]
  - Fistula [None]
  - General physical health deterioration [None]
  - Abscess [None]
